FAERS Safety Report 15806233 (Version 5)
Quarter: 2020Q1

REPORT INFORMATION
  Report Type: Spontaneous
  Country: US (occurrence: US)
  Receive Date: 20190110
  Receipt Date: 20200312
  Transmission Date: 20200409
  Serious: No
  Sender: FDA-Public Use
  Company Number: US-PFIZER INC-2019006589

PATIENT
  Age: 55 Year
  Sex: Female
  Weight: 75 kg

DRUGS (5)
  1. LYRICA [Suspect]
     Active Substance: PREGABALIN
     Dosage: UNK, TWICE DAILY
     Route: 048
     Dates: start: 201812, end: 201812
  2. SOMA [Concomitant]
     Active Substance: CARISOPRODOL
     Dosage: 1 DF, THRICE DAILY
  3. NORCO [Concomitant]
     Active Substance: ACETAMINOPHEN\HYDROCODONE BITARTRATE
     Dosage: 1 DF, FOUR TIMES DAILY
  4. LYRICA [Suspect]
     Active Substance: PREGABALIN
     Indication: NERVE INJURY
     Dosage: 100 MG, TWICE DAILY
     Route: 048
  5. LYRICA [Suspect]
     Active Substance: PREGABALIN
     Dosage: UNK, ONCE DAILY
     Route: 048
     Dates: start: 201812, end: 201812

REACTIONS (6)
  - Pain [Unknown]
  - Intentional product use issue [Unknown]
  - Malaise [Recovering/Resolving]
  - Feeling abnormal [Recovering/Resolving]
  - Confusional state [Unknown]
  - Withdrawal syndrome [Recovering/Resolving]

NARRATIVE: CASE EVENT DATE: 201812
